FAERS Safety Report 5906672-4 (Version None)
Quarter: 2008Q3

REPORT INFORMATION
  Report Type: 
  Country: None (occurrence: None)
  Receive Date: 20080930
  Receipt Date: 20080915
  Transmission Date: 20090109
  Serious: Yes (Hospitalization)
  Sender: FDA-Public Use
  Company Number: TPG2008A01286

PATIENT
  Age: 53 Year
  Sex: Male

DRUGS (3)
  1. ACTOS [Suspect]
     Indication: TYPE 2 DIABETES MELLITUS
     Route: 048
  2. INSULIN (INSULIN) [Concomitant]
  3. METFORMIN (INSULIN) [Concomitant]

REACTIONS (1)
  - TENDON RUPTURE [None]
